FAERS Safety Report 8197706-8 (Version None)
Quarter: 2012Q1

REPORT INFORMATION
  Report Type: 
  Country: None (occurrence: None)
  Receive Date: 20120309
  Receipt Date: 20120228
  Transmission Date: 20120608
  Serious: Yes (Hospitalization)
  Sender: FDA-Public Use
  Company Number: US-VIROPHARMA INCORPORATED-20120228CINRY2691

PATIENT
  Sex: Female

DRUGS (2)
  1. DANAZOL [Concomitant]
     Indication: HEREDITARY ANGIOEDEMA
     Dosage: UNKNOWN
     Route: 065
  2. CINRYZE [Suspect]
     Indication: HEREDITARY ANGIOEDEMA
     Dates: start: 20111005

REACTIONS (3)
  - HAEMORRHOIDS [None]
  - GASTROINTESTINAL HAEMORRHAGE [None]
  - CLOSTRIDIAL INFECTION [None]
